FAERS Safety Report 6700428-0 (Version None)
Quarter: 2010Q2

REPORT INFORMATION
  Report Type: 
  Country: None (occurrence: None)
  Receive Date: 20100428
  Receipt Date: 20100422
  Transmission Date: 20101027
  Serious: Yes (Death)
  Sender: FDA-Public Use
  Company Number: DE-ELI_LILLY_AND_COMPANY-DE201002005669

PATIENT
  Sex: Male

DRUGS (1)
  1. PEMETREXED [Suspect]
     Indication: BRONCHIAL CARCINOMA
     Route: 042

REACTIONS (2)
  - BRONCHIAL CARCINOMA [None]
  - PANCYTOPENIA [None]
